FAERS Safety Report 18477197 (Version 1)
Quarter: 2020Q4

REPORT INFORMATION
  Report Type: Spontaneous
  Country: US (occurrence: US)
  Receive Date: 20201107
  Receipt Date: 20201107
  Transmission Date: 20210114
  Serious: No
  Sender: FDA-Public Use
  Company Number: US-PERRIGO-20US013660

PATIENT
  Age: 90 Year
  Sex: Female
  Weight: 52.15 kg

DRUGS (9)
  1. LEXAPRO [Concomitant]
     Active Substance: ESCITALOPRAM OXALATE
     Indication: NERVOUSNESS
  2. RESTASIS [Concomitant]
     Active Substance: CYCLOSPORINE
     Dosage: UNKNOWN, DAILY
     Route: 047
     Dates: start: 202003
  3. ERYTHROMYCIN. [Suspect]
     Active Substance: ERYTHROMYCIN
     Indication: KERATITIS
     Dosage: A LITTLE BIT, QHS, 4 DAYS
     Route: 047
     Dates: start: 202009, end: 202009
  4. ATIVAN [Concomitant]
     Active Substance: LORAZEPAM
     Indication: ANXIETY
     Dosage: UNKNOWN, UNKNOWN
     Route: 048
     Dates: start: 2018
  5. RESTASIS [Concomitant]
     Active Substance: CYCLOSPORINE
     Indication: DRY EYE
     Dosage: UNKNOWN, OFF AND ON
     Route: 047
     Dates: start: 2018
  6. ERYTHROMYCIN. [Suspect]
     Active Substance: ERYTHROMYCIN
     Indication: EYE IRRITATION
     Dosage: A LITTLE BIT, QHS OFF AND ON
     Route: 047
     Dates: start: 202008, end: 202008
  7. LEXAPRO [Concomitant]
     Active Substance: ESCITALOPRAM OXALATE
     Indication: ANXIETY
     Dosage: UNKNOWN, UNKNOWN
     Route: 048
     Dates: start: 2018
  8. ATIVAN [Concomitant]
     Active Substance: LORAZEPAM
     Indication: INSOMNIA
  9. ATIVAN [Concomitant]
     Active Substance: LORAZEPAM
     Indication: NERVOUSNESS

REACTIONS (3)
  - Off label use [Recovered/Resolved]
  - Ocular discomfort [Recovered/Resolved]
  - Vision blurred [Recovered/Resolved]

NARRATIVE: CASE EVENT DATE: 202008
